FAERS Safety Report 7058949-X (Version None)
Quarter: 2010Q4

REPORT INFORMATION
  Report Type: 
  Country: None (occurrence: None)
  Receive Date: 20101024
  Receipt Date: 20090716
  Transmission Date: 20110411
  Serious: Yes (Other)
  Sender: FDA-Public Use
  Company Number: IT-MYLANLABS-2009S1012548

PATIENT
  Age: 71 Year
  Sex: Female

DRUGS (9)
  1. SERTRALINE HYDROCHLORIDE [Suspect]
     Indication: DEPRESSION
     Route: 048
     Dates: start: 20070901, end: 20071218
  2. SERTRALINE HYDROCHLORIDE [Suspect]
     Route: 048
     Dates: start: 20080122, end: 20070206
  3. AMISULPRIDE [Concomitant]
     Route: 048
     Dates: start: 20070301, end: 20071201
  4. DIAZEPAM [Concomitant]
     Route: 048
  5. NICERGOLINE [Concomitant]
     Route: 048
  6. AMLODIPINE [Concomitant]
     Route: 048
  7. ASPIRIN [Concomitant]
     Route: 048
  8. CANDESARTAN CILEXETIL [Concomitant]
     Route: 048
  9. ATENOLOL [Concomitant]
     Route: 048

REACTIONS (1)
  - RHABDOMYOLYSIS [None]
